FAERS Safety Report 5367658-4 (Version None)
Quarter: 2007Q2

REPORT INFORMATION
  Report Type: 
  Country: None (occurrence: None)
  Receive Date: 20070622
  Receipt Date: 20070116
  Transmission Date: 20071010
  Serious: No
  Sender: FDA-Public Use
  Company Number: US-ASTRAZENECA-2007UW00788

PATIENT
  Age: 13 Year
  Sex: Female
  Weight: 56.7 kg

DRUGS (2)
  1. PULMICORT [Suspect]
     Indication: ASTHMA EXERCISE INDUCED
     Dosage: 1 PUFF BID
     Route: 055
     Dates: start: 20060901
  2. ALBUTEROL [Concomitant]

REACTIONS (2)
  - EYE PAIN [None]
  - HEADACHE [None]
